FAERS Safety Report 8432355-5 (Version None)
Quarter: 2012Q2

REPORT INFORMATION
  Report Type: 
  Country: None (occurrence: None)
  Receive Date: 20120607
  Receipt Date: 20100610
  Transmission Date: 20120825
  Serious: No
  Sender: FDA-Public Use
  Company Number: 2010JP003386

PATIENT
  Age: 37 Year
  Sex: Female

DRUGS (4)
  1. PREDNISOLONE [Suspect]
     Indication: RENAL TRANSPLANT
     Dosage: 20 MG 5 MG
  2. TACROLIMUS [Suspect]
     Indication: RENAL TRANSPLANT
     Dosage: 2 MG, BID
  3. MYCOPHENOLATE MOFETIL [Suspect]
     Indication: RENAL TRANSPLANT
     Dosage: 1 G, BID 250 MG, BID
  4. LABETALOL HCL [Suspect]
     Indication: RENAL TRANSPLANT
     Dosage: 200 MG, BID

REACTIONS (4)
  - PREGNANCY [None]
  - MATERNAL EXPOSURE DURING PREGNANCY [None]
  - PREMATURE DELIVERY [None]
  - CAESAREAN SECTION [None]
